FAERS Safety Report 9724660 (Version 3)
Quarter: 2013Q4

REPORT INFORMATION
  Report Type: Spontaneous
  Country: AU (occurrence: AU)
  Receive Date: 20131202
  Receipt Date: 20131202
  Transmission Date: 20140711
  Serious: Yes (Death, Life-Threatening, Other)
  Sender: FDA-Public Use
  Company Number: AU-US-EMD SERONO, INC.-7152077

PATIENT
  Sex: Male
  Weight: 72 kg

DRUGS (3)
  1. CLADRIBINE [Suspect]
     Indication: MULTIPLE SCLEROSIS
     Dosage: 70 MG IN FOUR DAYS
     Dates: start: 20110329, end: 20110401
  2. CLADRIBINE [Suspect]
     Dosage: 70 MG IN FOUR DAYS
     Dates: start: 20110503, end: 20110506
  3. CLADRIBINE [Suspect]

REACTIONS (1)
  - Lung adenocarcinoma stage II [Fatal]
